FAERS Safety Report 11142156 (Version 4)
Quarter: 2015Q3

REPORT INFORMATION
  Report Type: Spontaneous
  Country: US (occurrence: US)
  Receive Date: 20150527
  Receipt Date: 20150709
  Transmission Date: 20151125
  Serious: Yes (Hospitalization)
  Sender: FDA-Public Use
  Company Number: US-GLAXOSMITHKLINE-US2015069909

PATIENT
  Sex: Female

DRUGS (16)
  1. VENTOLIN HFA [Suspect]
     Active Substance: ALBUTEROL SULFATE
     Indication: MULTIPLE ALLERGIES
  2. ACYCLOVIR. [Concomitant]
     Active Substance: ACYCLOVIR
  3. FUROSEMIDE. [Concomitant]
     Active Substance: FUROSEMIDE
  4. LORATIDINE [Concomitant]
     Active Substance: LORATADINE
  5. CIPRO [Suspect]
     Active Substance: CIPROFLOXACIN HYDROCHLORIDE
     Indication: PRODUCT USED FOR UNKNOWN INDICATION
  6. MAGNESIUM OXIDE. [Concomitant]
     Active Substance: MAGNESIUM OXIDE
  7. OMEPRAZOLE. [Concomitant]
     Active Substance: OMEPRAZOLE
  8. VIACTIV (CALCIUM) [Concomitant]
  9. VITAMIN C [Concomitant]
     Active Substance: ASCORBIC ACID
  10. VENTOLIN HFA [Suspect]
     Active Substance: ALBUTEROL SULFATE
     Indication: COUGH
     Dosage: 2 PUFF(S), QID
     Route: 055
  11. DIVALPROEX [Concomitant]
     Active Substance: DIVALPROEX SODIUM
  12. FLUTICASONE PROPIONATE. [Concomitant]
     Active Substance: FLUTICASONE PROPIONATE
  13. VENTOLIN HFA [Suspect]
     Active Substance: ALBUTEROL SULFATE
     Indication: PRODUCT USED FOR UNKNOWN INDICATION
  14. LEVOTHYROXINE. [Concomitant]
     Active Substance: LEVOTHYROXINE
  15. MELATONIN [Concomitant]
     Active Substance: MELATONIN
  16. KLONOPIN [Concomitant]
     Active Substance: CLONAZEPAM

REACTIONS (5)
  - Herpes zoster [Recovered/Resolved]
  - Cough [Unknown]
  - Drug hypersensitivity [Unknown]
  - Device use error [Recovered/Resolved]
  - Off label use [Not Recovered/Not Resolved]
